FAERS Safety Report 8283908-9 (Version None)
Quarter: 2012Q2

REPORT INFORMATION
  Report Type: 
  Country: None (occurrence: None)
  Receive Date: 20120413
  Receipt Date: 20120411
  Transmission Date: 20120825
  Serious: Yes (Other)
  Sender: FDA-Public Use
  Company Number: CA-ABBOTT-12P-028-0918506-00

PATIENT
  Sex: Female
  Weight: 46.762 kg

DRUGS (11)
  1. VESICAIRE [Concomitant]
     Indication: PRODUCT USED FOR UNKNOWN INDICATION
  2. EURO-FER [Concomitant]
     Indication: PRODUCT USED FOR UNKNOWN INDICATION
  3. D-GEL [Concomitant]
     Indication: VITAMIN SUPPLEMENTATION
  4. HUMIRA [Suspect]
     Indication: CROHN'S DISEASE
     Dates: start: 20110601
  5. HUMIRA [Suspect]
     Dates: start: 20120101
  6. D-GEL [Concomitant]
     Indication: BONE DISORDER
  7. VOLTAREN [Concomitant]
     Indication: PAIN
     Dosage: 1.16%
     Route: 061
  8. FORZA [Concomitant]
     Indication: PRODUCT USED FOR UNKNOWN INDICATION
  9. FOSAMAX [Concomitant]
     Indication: PRODUCT USED FOR UNKNOWN INDICATION
  10. JAMP-CALCIUM [Concomitant]
     Indication: PRODUCT USED FOR UNKNOWN INDICATION
  11. PURINETHOL [Concomitant]
     Indication: PRODUCT USED FOR UNKNOWN INDICATION

REACTIONS (1)
  - BREAST CANCER [None]
